FAERS Safety Report 26199283 (Version 1)
Quarter: 2025Q4

REPORT INFORMATION
  Report Type: Spontaneous
  Country: EU (occurrence: EU)
  Receive Date: 20251225
  Receipt Date: 20251225
  Transmission Date: 20260117
  Serious: Yes (Other)
  Sender: BOEHRINGER INGELHEIM
  Company Number: EU-BoehringerIngelheim-2025-BI-116009

PATIENT
  Sex: Female
  Weight: 68 kg

DRUGS (6)
  1. OFEV [Suspect]
     Active Substance: NINTEDANIB
     Indication: Product used for unknown indication
  2. MYCOPHENOLIC ACID [Concomitant]
     Active Substance: MYCOPHENOLIC ACID
     Indication: Product used for unknown indication
  3. METHYLPREDNISOLONE [Concomitant]
     Active Substance: METHYLPREDNISOLONE
     Indication: Product used for unknown indication
  4. ADCIRCA [Concomitant]
     Active Substance: TADALAFIL
     Indication: Product used for unknown indication
  5. OPSUMIT [Concomitant]
     Active Substance: MACITENTAN
     Indication: Product used for unknown indication
  6. OXYGEN [Concomitant]
     Active Substance: OXYGEN
     Indication: Product used for unknown indication
     Dosage: 3L/MIN

REACTIONS (10)
  - Cholecystitis [Unknown]
  - Pancreatitis acute [Unknown]
  - Cardiac tamponade [Unknown]
  - Pleuropericarditis [Unknown]
  - Diarrhoea [Unknown]
  - Uterine leiomyoma [Unknown]
  - Aortic valve incompetence [Unknown]
  - Depression [Unknown]
  - Dyslipidaemia [Unknown]
  - Insulin autoimmune syndrome [Unknown]
